FAERS Safety Report 7798974-4 (Version None)
Quarter: 2011Q4

REPORT INFORMATION
  Report Type: 
  Country: None (occurrence: None)
  Receive Date: 20111006
  Receipt Date: 20110928
  Transmission Date: 20120403
  Serious: Yes (Other)
  Sender: FDA-Public Use
  Company Number: IN-ASTELLAS-2011JP006847

PATIENT
  Age: 54 Year
  Sex: Male

DRUGS (6)
  1. MYFORTIC [Concomitant]
     Dosage: UNK
     Route: 065
     Dates: start: 20110119, end: 20110922
  2. ECOSPRIN [Concomitant]
     Dosage: UNK
     Route: 065
     Dates: start: 20110119, end: 20110922
  3. SUPRACAL [Concomitant]
     Dosage: UNK
     Route: 065
     Dates: start: 20110119, end: 20110922
  4. TACROLIMUS [Suspect]
     Indication: PROPHYLAXIS AGAINST TRANSPLANT REJECTION
  5. TACROLIMUS [Suspect]
     Indication: LIVER TRANSPLANT
     Dosage: 3.5 MG, UID/QD
     Route: 048
     Dates: start: 20110608, end: 20110922
  6. BECOSULES [Concomitant]
     Dosage: UNK
     Route: 065
     Dates: start: 20110119, end: 20110922

REACTIONS (4)
  - TREMOR [None]
  - ANXIETY [None]
  - ENZYME ABNORMALITY [None]
  - HEADACHE [None]
